FAERS Safety Report 5226566-X (Version None)
Quarter: 2007Q1

REPORT INFORMATION
  Report Type: 
  Country: None (occurrence: None)
  Receive Date: 20061201
  Receipt Date: 20060921
  Transmission Date: 20070707
  Serious: No
  Sender: FDA-Public Use
  Company Number: US200609005608

PATIENT
  Age: 45 Year
  Sex: Female

DRUGS (3)
  1. CYMBALTA [Suspect]
     Indication: DEPRESSION
     Dosage: 60 MG, ORAL
     Route: 048
     Dates: start: 20060101, end: 20060101
  2. HALDOL (AHLOPERIDOL) [Concomitant]
  3. DARVOCET-N 100 [Concomitant]

REACTIONS (4)
  - DRUG INTERACTION [None]
  - MUSCLE RIGIDITY [None]
  - ORAL MUCOSAL BLISTERING [None]
  - TARDIVE DYSKINESIA [None]
